FAERS Safety Report 10438896 (Version 1)
Quarter: 2014Q3

REPORT INFORMATION
  Report Type: Spontaneous
  Country: JP (occurrence: JP)
  Receive Date: 20140908
  Receipt Date: 20140908
  Transmission Date: 20150326
  Serious: No
  Sender: FDA-Public Use
  Company Number: PHHY2010JP096708

PATIENT
  Age: 58 Year
  Sex: Male

DRUGS (2)
  1. SPRYCEL [Suspect]
     Active Substance: DASATINIB
     Dosage: 50 MG, UNK
     Dates: end: 20101028
  2. TASIGNA [Suspect]
     Active Substance: NILOTINIB
     Indication: CHRONIC MYELOID LEUKAEMIA
     Dosage: 400 MG, DAILY
     Dates: start: 20101028, end: 20101213

REACTIONS (8)
  - Therapeutic response changed [Unknown]
  - Erythema [Recovered/Resolved]
  - Pancytopenia [Recovering/Resolving]
  - Appetite disorder [Unknown]
  - Electrocardiogram abnormal [Unknown]
  - Evans syndrome [Recovered/Resolved]
  - Pruritus [Recovered/Resolved]
  - Rash [Recovering/Resolving]

NARRATIVE: CASE EVENT DATE: 20101206
